FAERS Safety Report 4915849-6 (Version None)
Quarter: 2006Q1

REPORT INFORMATION
  Report Type: 
  Country: None (occurrence: None)
  Receive Date: 20060214
  Receipt Date: 20060201
  Transmission Date: 20060701
  Serious: Yes (Other)
  Sender: FDA-Public Use
  Company Number: 2006016848

PATIENT
  Sex: Male
  Weight: 92.9874 kg

DRUGS (2)
  1. VIAGRA [Suspect]
     Indication: ERECTILE DYSFUNCTION
     Dosage: 100 MG (100 MG, AS NECESSARY)
     Dates: end: 20050101
  2. LORTAB [Concomitant]

REACTIONS (5)
  - BACK PAIN [None]
  - BLINDNESS TRANSIENT [None]
  - DYSPNOEA [None]
  - MUSCLE STRAIN [None]
  - VISION BLURRED [None]
